FAERS Safety Report 9939416 (Version 1)
Quarter: 2014Q1

REPORT INFORMATION
  Report Type: Report from Study
  Country: US (occurrence: US)
  Receive Date: 20140303
  Receipt Date: 20140303
  Transmission Date: 20141002
  Serious: No
  Sender: FDA-Public Use
  Company Number: US-ABBVIE-13P-163-1032143-00

PATIENT
  Age: 28 Year
  Sex: Female
  Weight: 79.45 kg

DRUGS (13)
  1. HUMIRA [Suspect]
     Indication: PSORIATIC ARTHROPATHY
     Dates: start: 20120713, end: 20120727
  2. HUMIRA [Suspect]
     Dates: start: 20120810
  3. PRENATAL VITAMINS [Concomitant]
     Indication: PRODUCT USED FOR UNKNOWN INDICATION
     Dosage: PILL
     Route: 048
     Dates: start: 20120813
  4. CAFFEINE [Concomitant]
     Indication: PRODUCT USED FOR UNKNOWN INDICATION
     Dosage: 1 SERVING 3.5 WEEKS SODA
     Route: 048
     Dates: start: 20120506, end: 20120701
  5. METRONIDAZOLE [Concomitant]
     Indication: PROPHYLAXIS
     Route: 048
     Dates: start: 20120721, end: 20120726
  6. METRONIDAZOLE [Concomitant]
     Indication: INFECTION
  7. FLUOCINONIDE [Concomitant]
     Indication: PRODUCT USED FOR UNKNOWN INDICATION
     Dosage: FACE AND SCALP
     Route: 061
     Dates: start: 20120506
  8. HUMALOG [Concomitant]
     Indication: TYPE 1 DIABETES MELLITUS
     Route: 050
     Dates: start: 20120506, end: 20121105
  9. HUMALOG [Concomitant]
     Route: 050
     Dates: start: 20121106, end: 20121130
  10. HUMALOG [Concomitant]
     Route: 050
     Dates: start: 20121201
  11. TYLENOL [Concomitant]
     Indication: HEADACHE
     Dosage: 1.5 PILL
     Route: 048
     Dates: start: 20120506, end: 20121206
  12. TYLENOL [Concomitant]
     Indication: PAIN
  13. INFLUENZA VACCINE [Concomitant]
     Indication: PRODUCT USED FOR UNKNOWN INDICATION
     Dosage: 1 SHOT
     Route: 050
     Dates: start: 20121015, end: 20121015

REACTIONS (2)
  - Dyspepsia [Not Recovered/Not Resolved]
  - Tooth abscess [Recovered/Resolved]
